FAERS Safety Report 25136382 (Version 1)
Quarter: 2025Q1

REPORT INFORMATION
  Report Type: Spontaneous
  Country: FR (occurrence: FR)
  Receive Date: 20250328
  Receipt Date: 20250328
  Transmission Date: 20250409
  Serious: Yes (Death, Hospitalization, Other)
  Sender: VERTEX
  Company Number: None

PATIENT
  Age: 40 Year
  Sex: Male
  Weight: 63 kg

DRUGS (9)
  1. ELEXACAFTOR\IVACAFTOR\TEZACAFTOR [Suspect]
     Active Substance: ELEXACAFTOR\IVACAFTOR\TEZACAFTOR
     Indication: Cystic fibrosis
     Dosage: 150 MILLIGRAM, QD
     Route: 048
     Dates: start: 20210705, end: 20221018
  2. ELEXACAFTOR\IVACAFTOR\TEZACAFTOR [Suspect]
     Active Substance: ELEXACAFTOR\IVACAFTOR\TEZACAFTOR
     Dosage: 75 MILLIGRAM, QD
     Route: 048
     Dates: start: 20221019, end: 202302
  3. ELEXACAFTOR\IVACAFTOR\TEZACAFTOR [Suspect]
     Active Substance: ELEXACAFTOR\IVACAFTOR\TEZACAFTOR
     Dosage: 150 MILLIGRAM, QD
     Route: 048
     Dates: start: 202302, end: 20250223
  4. KALYDECO [Suspect]
     Active Substance: IVACAFTOR
     Indication: Cystic fibrosis
     Dosage: 1 DOSAGE FORM, QD
     Route: 048
     Dates: start: 20210705, end: 20231127
  5. INNOVAIR [Concomitant]
     Active Substance: BECLOMETHASONE DIPROPIONATE\FORMOTEROL
     Dosage: 4 DOSAGE, 100/6 MICROGRAMS/DOSE, SOLUTION FOR INHALATION IN PRESSURIZED VIAL, QD
     Dates: end: 20250223
  6. ALBUTEROL SULFATE [Concomitant]
     Active Substance: ALBUTEROL SULFATE
     Dates: end: 20250223
  7. CREON [Concomitant]
     Active Substance: PANCRELIPASE AMYLASE\PANCRELIPASE LIPASE\PANCRELIPASE PROTEASE
     Dosage: 8 DOSAGE FORM, QD
     Route: 048
     Dates: end: 20250223
  8. URSODIOL [Concomitant]
     Active Substance: URSODIOL
     Dosage: 2 DOSAGE FORM, QD
     Route: 048
     Dates: end: 20250223
  9. HUMALOG [Concomitant]
     Active Substance: INSULIN LISPRO
     Route: 058
     Dates: end: 20250223

REACTIONS (3)
  - Completed suicide [Fatal]
  - Flat affect [Recovered/Resolved]
  - Insomnia [Recovered/Resolved]

NARRATIVE: CASE EVENT DATE: 20221001
